FAERS Safety Report 5577469-2 (Version None)
Quarter: 2007Q4

REPORT INFORMATION
  Report Type: 
  Country: None (occurrence: None)
  Receive Date: 20071228
  Receipt Date: 20071217
  Transmission Date: 20080405
  Serious: Yes (Hospitalization)
  Sender: FDA-Public Use
  Company Number: CH-PFIZER INC-2007105505

PATIENT
  Sex: Female

DRUGS (13)
  1. NEURONTIN [Suspect]
     Indication: ALCOHOL USE
     Route: 048
     Dates: start: 20070607, end: 20070611
  2. ZOLOFT [Suspect]
     Route: 048
     Dates: start: 20070522, end: 20070528
  3. AUGMENTIN '250' [Suspect]
     Route: 048
     Dates: start: 20070526, end: 20070529
  4. NOROXIN [Suspect]
     Indication: URINARY TRACT INFECTION
     Route: 048
     Dates: start: 20070523, end: 20070529
  5. EFFEXOR [Suspect]
     Route: 048
  6. SERESTA [Concomitant]
     Route: 048
     Dates: start: 20070524, end: 20070610
  7. MG 5 - LONGORAL [Concomitant]
     Route: 060
  8. BENERVA [Concomitant]
     Route: 048
  9. BECOZYM [Concomitant]
  10. GYNO-TARDYFERON [Concomitant]
     Route: 048
     Dates: start: 20070522, end: 20070528
  11. CALCIMAGON-D3 [Concomitant]
     Route: 048
     Dates: start: 20070522, end: 20070607
  12. ASPIRIN [Concomitant]
     Route: 048
  13. EUTHYROX [Concomitant]
     Route: 048

REACTIONS (3)
  - DERMATITIS EXFOLIATIVE [None]
  - OFF LABEL USE [None]
  - RASH PUSTULAR [None]
